FAERS Safety Report 6826421-5 (Version None)
Quarter: 2010Q3

REPORT INFORMATION
  Report Type: 
  Country: None (occurrence: None)
  Receive Date: 20100709
  Receipt Date: 20100630
  Transmission Date: 20110219
  Serious: Yes (Other)
  Sender: FDA-Public Use
  Company Number: US-BAYER-201018094NA

PATIENT
  Age: 21 Year
  Sex: Male

DRUGS (5)
  1. AVELOX [Suspect]
     Indication: URINARY TRACT INFECTION
     Route: 042
     Dates: start: 20100329
  2. AVELOX [Suspect]
     Indication: PRODUCT USED FOR UNKNOWN INDICATION
     Dosage: ONE TABLET
     Route: 048
  3. METHOTREXATE [Concomitant]
     Route: 065
  4. PREDNISONE [Concomitant]
     Route: 065
  5. PLAQUENIL [Concomitant]
     Route: 065

REACTIONS (7)
  - CHEST PAIN [None]
  - CONVULSION [None]
  - HEADACHE [None]
  - PARAESTHESIA [None]
  - PARAESTHESIA ORAL [None]
  - RASH MACULAR [None]
  - TREMOR [None]
